FAERS Safety Report 5804609-X (Version None)
Quarter: 2008Q3

REPORT INFORMATION
  Report Type: 
  Country: None (occurrence: None)
  Receive Date: 20080707
  Receipt Date: 20080707
  Transmission Date: 20090109
  Serious: Yes (Hospitalization)
  Sender: FDA-Public Use
  Company Number: None

PATIENT
  Sex: Male
  Weight: 83 kg

DRUGS (1)
  1. TEMOZOLOMIDE [Suspect]
     Dosage: 3450 MG

REACTIONS (7)
  - COMPLEX PARTIAL SEIZURES [None]
  - GRIP STRENGTH DECREASED [None]
  - HEMIPARESIS [None]
  - MOVEMENT DISORDER [None]
  - OXYGEN SATURATION DECREASED [None]
  - RESPIRATORY RATE INCREASED [None]
  - TRANSIENT ISCHAEMIC ATTACK [None]
